FAERS Safety Report 6891641-0 (Version None)
Quarter: 2010Q3

REPORT INFORMATION
  Report Type: 
  Country: None (occurrence: None)
  Receive Date: 20100731
  Receipt Date: 20070831
  Transmission Date: 20110219
  Serious: No
  Sender: FDA-Public Use
  Company Number: US-PFIZER INC-2007073304

PATIENT

DRUGS (1)
  1. CAMPTOSAR [Suspect]
     Indication: COLORECTAL CANCER METASTATIC

REACTIONS (2)
  - DIARRHOEA [None]
  - MUSCLE SPASMS [None]
